FAERS Safety Report 18397741 (Version 1)
Quarter: 2020Q4

REPORT INFORMATION
  Report Type: Spontaneous
  Country: US (occurrence: US)
  Receive Date: 20201019
  Receipt Date: 20201019
  Transmission Date: 20210114
  Serious: No
  Sender: FDA-Public Use
  Company Number: US-JNJFOC-20201023095

PATIENT
  Sex: Male

DRUGS (3)
  1. DURAGESIC [Suspect]
     Active Substance: FENTANYL
     Dosage: DOCTOR INCREASED IT TO 37 MCG (12 AND 25 MCG PATCHES) ABOUT A YEAR AGO
     Route: 062
  2. DURAGESIC [Suspect]
     Active Substance: FENTANYL
     Indication: PRODUCT USED FOR UNKNOWN INDICATION
     Route: 062
     Dates: start: 2008
  3. DURAGESIC [Suspect]
     Active Substance: FENTANYL
     Route: 062

REACTIONS (1)
  - Withdrawal syndrome [Unknown]
